FAERS Safety Report 15069719 (Version 1)
Quarter: 2018Q2

REPORT INFORMATION
  Report Type: Report from Study
  Country: US (occurrence: US)
  Receive Date: 20180626
  Receipt Date: 20180626
  Transmission Date: 20180711
  Serious: No
  Sender: FDA-Public Use
  Company Number: US-AMGEN-USASP2013065587

PATIENT
  Age: 48 Year
  Sex: Female

DRUGS (17)
  1. 5 FLUOROURACIL                     /00098801/ [Concomitant]
     Active Substance: FLUOROURACIL
     Dosage: UNK
     Dates: end: 20120920
  2. EPIRUBICIN                         /00699302/ [Concomitant]
     Active Substance: EPIRUBICIN
     Dosage: UNK
     Dates: end: 20120920
  3. NEULASTA [Suspect]
     Active Substance: PEGFILGRASTIM
     Indication: BREAST CANCER
     Dosage: 6 MG, ONE DOSE ON DAY 2 OF HER CYCLE
     Route: 058
  4. HERCEPTIN [Suspect]
     Active Substance: TRASTUZUMAB
     Indication: BREAST CANCER
     Dosage: UNK
     Route: 065
     Dates: end: 20120920
  5. NORMAL SALINE [Concomitant]
     Active Substance: SODIUM CHLORIDE
     Dosage: UNK
  6. COMPAZINE                          /00013304/ [Concomitant]
     Active Substance: PROCHLORPERAZINE MALEATE
     Indication: VOMITING
  7. HERCEPTIN [Suspect]
     Active Substance: TRASTUZUMAB
     Dosage: 456 MG, WEEKLY FOR 4 WEEKS (6MG/KG IN 250ML NS OF 30 MINUTES)
     Route: 065
     Dates: start: 20121115
  8. PERTUZUMAB. [Suspect]
     Active Substance: PERTUZUMAB
     Indication: BREAST CANCER
     Dosage: 840 MG OVER 60 MIN THEN EVERY 3 WKS 420MG IV OVER 30 MIN
     Route: 042
  9. TAXOTERE [Concomitant]
     Active Substance: DOCETAXEL
     Dosage: 130 MG, 1 IN 3 WK (75 MG/M2 IN 250 ML NORMAL SALINE EVERY 3 WEEKS OVER 1 HOUR)
  10. ZOFRAN [Concomitant]
     Active Substance: ONDANSETRON HYDROCHLORIDE
     Dosage: 20 MG PRIOR TO CHEMOTHERAPY
     Route: 042
  11. BENADRYL [Concomitant]
     Active Substance: DIPHENHYDRAMINE HYDROCHLORIDE
     Dosage: 25 MG, UNK
     Route: 042
  12. CYCLOPHOSPHAMIDE. [Concomitant]
     Active Substance: CYCLOPHOSPHAMIDE
     Dosage: 500ML NORMAL SALINE OVER ONE HOUR
     Dates: end: 20120920
  13. COMPAZINE                          /00013304/ [Concomitant]
     Active Substance: PROCHLORPERAZINE MALEATE
     Indication: NAUSEA
     Dosage: 10 MG, EVERY 4 HOURS AS NEEDED
     Route: 048
  14. TAXOL [Concomitant]
     Active Substance: PACLITAXEL
     Dosage: UNK UNK, X 12 CYCLES
  15. DEXAMETHASONE. [Concomitant]
     Active Substance: DEXAMETHASONE
     Dosage: 10 MG, PRIOR TO CHEMOTHERAPY
     Route: 042
  16. NAVELBINE [Concomitant]
     Active Substance: VINORELBINE TARTRATE
     Dosage: UNK, WEEKLY 3 WEEKS ON AND 1 WEEK OFF
  17. DECADRON [Concomitant]
     Active Substance: DEXAMETHASONE
     Dosage: 4 MG, TWICE A DAY FOR THREE DAYS
     Route: 048

REACTIONS (2)
  - Disease progression [Unknown]
  - Hepatic steatosis [Unknown]
